FAERS Safety Report 17633297 (Version 1)
Quarter: 2020Q2

REPORT INFORMATION
  Report Type: Spontaneous
  Country: US (occurrence: US)
  Receive Date: 20200406
  Receipt Date: 20200406
  Transmission Date: 20200713
  Serious: No
  Sender: FDA-Public Use
  Company Number: US-MATRIXX INITIATIVES, INC.-2082402

PATIENT
  Age: 46 Year
  Sex: Female
  Weight: 77.27 kg

DRUGS (3)
  1. ZICAM COLD REMEDY NASAL SWABS (HOMEOPATHICS) [Suspect]
     Active Substance: HOMEOPATHICS\ZINC ACETATE\ZINC GLUCONATE
     Indication: NASOPHARYNGITIS
     Route: 045
     Dates: start: 20200330, end: 20200402
  2. AIRBORNE [Suspect]
     Active Substance: HERBALS\MINERALS\VITAMINS
  3. FLONASE [Concomitant]
     Active Substance: FLUTICASONE PROPIONATE

REACTIONS (4)
  - Nasal irrigation [None]
  - Dysgeusia [None]
  - Anosmia [None]
  - Epistaxis [None]
